FAERS Safety Report 17921684 (Version 5)
Quarter: 2021Q2

REPORT INFORMATION
  Report Type: Spontaneous
  Country: US (occurrence: US)
  Receive Date: 20200622
  Receipt Date: 20210629
  Transmission Date: 20210717
  Serious: Yes (Hospitalization, Other)
  Sender: FDA-Public Use
  Company Number: US-GILEAD-2020-0474182

PATIENT
  Age: 59 Year
  Sex: Male
  Weight: 83.9 kg

DRUGS (39)
  1. TRUVADA [Suspect]
     Active Substance: EMTRICITABINE\TENOFOVIR DISOPROXIL FUMARATE
     Dosage: UNK
     Route: 048
     Dates: start: 2004, end: 2008
  2. XANAX [Concomitant]
     Active Substance: ALPRAZOLAM
  3. DESONIDE. [Concomitant]
     Active Substance: DESONIDE
  4. LISINOPRIL. [Concomitant]
     Active Substance: LISINOPRIL
  5. TRUVADA [Suspect]
     Active Substance: EMTRICITABINE\TENOFOVIR DISOPROXIL FUMARATE
     Indication: HIV INFECTION
     Dosage: UNK
     Route: 048
     Dates: start: 2007, end: 2018
  6. TRUVADA [Suspect]
     Active Substance: EMTRICITABINE\TENOFOVIR DISOPROXIL FUMARATE
     Dosage: UNK
     Route: 048
     Dates: start: 20080225, end: 20160607
  7. DESCOVY [Concomitant]
     Active Substance: EMTRICITABINE\TENOFOVIR ALAFENAMIDE FUMARATE
  8. TEMAZEPAM. [Concomitant]
     Active Substance: TEMAZEPAM
  9. METRONIDAZOLE. [Concomitant]
     Active Substance: METRONIDAZOLE
  10. TYLENOL [Concomitant]
     Active Substance: ACETAMINOPHEN
  11. IBUPROFEN. [Concomitant]
     Active Substance: IBUPROFEN
  12. FLUVIRIN A [Concomitant]
  13. TRUVADA [Suspect]
     Active Substance: EMTRICITABINE\TENOFOVIR DISOPROXIL FUMARATE
     Dosage: UNK
     Route: 048
     Dates: start: 20150305, end: 20150607
  14. EMTRIVA [Concomitant]
     Active Substance: EMTRICITABINE
  15. AMBIEN [Concomitant]
     Active Substance: ZOLPIDEM TARTRATE
  16. TRUVADA [Suspect]
     Active Substance: EMTRICITABINE\TENOFOVIR DISOPROXIL FUMARATE
     Dosage: UNK
     Route: 048
     Dates: start: 2009, end: 2018
  17. VALIUM [Concomitant]
     Active Substance: DIAZEPAM
  18. BUMEX [Concomitant]
     Active Substance: BUMETANIDE
  19. NAPROXEN. [Concomitant]
     Active Substance: NAPROXEN
  20. REYATAZ [Concomitant]
     Active Substance: ATAZANAVIR SULFATE
  21. TRUVADA [Suspect]
     Active Substance: EMTRICITABINE\TENOFOVIR DISOPROXIL FUMARATE
     Dosage: UNK
     Route: 048
     Dates: start: 20080225, end: 20090323
  22. VIREAD [Suspect]
     Active Substance: TENOFOVIR DISOPROXIL FUMARATE
     Indication: HIV INFECTION
     Dosage: UNK
     Route: 048
     Dates: start: 200701, end: 201801
  23. DICLOFENAC [Concomitant]
     Active Substance: DICLOFENAC
  24. NORVIR [Concomitant]
     Active Substance: RITONAVIR
  25. CHANTIX [Concomitant]
     Active Substance: VARENICLINE TARTRATE
  26. HARVONI [Concomitant]
     Active Substance: LEDIPASVIR\SOFOSBUVIR
  27. TRUVADA [Suspect]
     Active Substance: EMTRICITABINE\TENOFOVIR DISOPROXIL FUMARATE
     Dosage: UNK
     Route: 048
     Dates: start: 20070101, end: 20180101
  28. TRUVADA [Suspect]
     Active Substance: EMTRICITABINE\TENOFOVIR DISOPROXIL FUMARATE
     Dosage: UNK
     Route: 048
     Dates: start: 20090323, end: 20101014
  29. TRUVADA [Suspect]
     Active Substance: EMTRICITABINE\TENOFOVIR DISOPROXIL FUMARATE
     Dosage: UNK
     Route: 048
     Dates: start: 20140824, end: 20141119
  30. TRUVADA [Suspect]
     Active Substance: EMTRICITABINE\TENOFOVIR DISOPROXIL FUMARATE
     Dosage: UNK
     Route: 048
     Dates: start: 20150305, end: 20160607
  31. ACYCLOVIR ABBOTT VIAL [Concomitant]
  32. ASPIRIN (E.C.) [Concomitant]
     Active Substance: ASPIRIN
  33. ISENTRESS [Concomitant]
     Active Substance: RALTEGRAVIR POTASSIUM
  34. AMOXICILLIN. [Concomitant]
     Active Substance: AMOXICILLIN
  35. ATIVAN [Concomitant]
     Active Substance: LORAZEPAM
  36. VIRAMUNE [Concomitant]
     Active Substance: NEVIRAPINE
  37. GABAPENTIN. [Concomitant]
     Active Substance: GABAPENTIN
  38. PREVIDENT [Concomitant]
     Active Substance: SODIUM FLUORIDE
  39. XYZAL [Concomitant]
     Active Substance: LEVOCETIRIZINE DIHYDROCHLORIDE

REACTIONS (17)
  - Rib fracture [Recovered/Resolved]
  - Mobility decreased [Not Recovered/Not Resolved]
  - Pain [Unknown]
  - Osteoporosis [Not Recovered/Not Resolved]
  - Clavicle fracture [Unknown]
  - Osteonecrosis [Unknown]
  - Bone loss [Unknown]
  - Pelvic fracture [Recovered/Resolved]
  - Bone density decreased [Not Recovered/Not Resolved]
  - Renal injury [Unknown]
  - Avulsion fracture [Unknown]
  - Scapula fracture [Recovered/Resolved]
  - Hand fracture [Recovered/Resolved]
  - Multiple fractures [Recovered/Resolved]
  - Emotional distress [Unknown]
  - Tooth loss [Not Recovered/Not Resolved]
  - Skeletal injury [Unknown]

NARRATIVE: CASE EVENT DATE: 20110108
